FAERS Safety Report 4364483-8 (Version None)
Quarter: 2004Q2

REPORT INFORMATION
  Report Type: 
  Country: None (occurrence: None)
  Receive Date: 20040519
  Receipt Date: 20040507
  Transmission Date: 20050107
  Serious: Yes (Hospitalization)
  Sender: FDA-Public Use
  Company Number: 04P-163-0260284-00

PATIENT
  Age: 55 Year
  Sex: Female
  Weight: 75.7507 kg

DRUGS (23)
  1. VICODIN ES [Suspect]
     Indication: TOOTHACHE
     Dates: start: 20031001
  2. PEGINTERFERON ALFA-2B [Suspect]
     Indication: HEPATITIS B
     Dosage: 150 MCG, 1 IN 1 WK, SUBCUTANEOUS; SEE IMAGE
     Route: 058
     Dates: start: 20030514, end: 20030101
  3. PEGINTERFERON ALFA-2B [Suspect]
     Indication: HEPATITIS C
     Dosage: 150 MCG, 1 IN 1 WK, SUBCUTANEOUS; SEE IMAGE
     Route: 058
     Dates: start: 20030514, end: 20030101
  4. PEGINTERFERON ALFA-2B [Suspect]
     Indication: HEPATITIS B
     Dosage: 150 MCG, 1 IN 1 WK, SUBCUTANEOUS; SEE IMAGE
     Route: 058
     Dates: start: 20030101, end: 20031201
  5. PEGINTERFERON ALFA-2B [Suspect]
     Indication: HEPATITIS C
     Dosage: 150 MCG, 1 IN 1 WK, SUBCUTANEOUS; SEE IMAGE
     Route: 058
     Dates: start: 20030101, end: 20031201
  6. RIBAVIRIN [Suspect]
     Indication: HEPATITIS B
     Dosage: 1200 MG, 1 IN 1 D, ORAL; SEE IMAGE
     Route: 048
     Dates: start: 20030514, end: 20030801
  7. RIBAVIRIN [Suspect]
     Indication: HEPATITIS C
     Dosage: 1200 MG, 1 IN 1 D, ORAL; SEE IMAGE
     Route: 048
     Dates: start: 20030514, end: 20030801
  8. RIBAVIRIN [Suspect]
     Indication: HEPATITIS B
     Dosage: 1200 MG, 1 IN 1 D, ORAL; SEE IMAGE
     Route: 048
     Dates: start: 20030801, end: 20031101
  9. RIBAVIRIN [Suspect]
     Indication: HEPATITIS C
     Dosage: 1200 MG, 1 IN 1 D, ORAL; SEE IMAGE
     Route: 048
     Dates: start: 20030801, end: 20031101
  10. RIBAVIRIN [Suspect]
     Indication: HEPATITIS B
     Dosage: 1200 MG, 1 IN 1 D, ORAL; SEE IMAGE
     Route: 048
     Dates: start: 20031101, end: 20031201
  11. RIBAVIRIN [Suspect]
     Indication: HEPATITIS C
     Dosage: 1200 MG, 1 IN 1 D, ORAL; SEE IMAGE
     Route: 048
     Dates: start: 20031101, end: 20031201
  12. GABAPENTIN [Suspect]
     Indication: NEUROPATHIC PAIN
     Dosage: 300 MG, 3 IN 1 D; SEE IMAGE
  13. ROFECOXIB [Concomitant]
  14. LEXAPRO [Concomitant]
  15. OMEPRAZOLE [Concomitant]
  16. ONDANSETRON HCL [Concomitant]
  17. PROCHLORPERAZINE EDISYLATE [Concomitant]
  18. BUSPIRONE HCL [Concomitant]
  19. MULTI-VITAMINS [Concomitant]
  20. NYSTATIN [Concomitant]
  21. LIDOCAINE [Concomitant]
  22. FILGRASTIM [Concomitant]
  23. EPOGEN [Concomitant]

REACTIONS (28)
  - ABDOMINAL PAIN UPPER [None]
  - CATARACT [None]
  - CELLULITIS [None]
  - CONDITION AGGRAVATED [None]
  - DECREASED APPETITE [None]
  - DEPRESSED MOOD [None]
  - DEPRESSION [None]
  - DIARRHOEA [None]
  - DISTURBANCE IN ATTENTION [None]
  - DRUG ABUSER [None]
  - FEELING OF DESPAIR [None]
  - GAIT DISTURBANCE [None]
  - HALLUCINATION, AUDITORY [None]
  - HALLUCINATION, VISUAL [None]
  - INFLUENZA LIKE ILLNESS [None]
  - INSOMNIA [None]
  - MYALGIA [None]
  - NAUSEA [None]
  - NEUROPATHIC PAIN [None]
  - NIGHTMARE [None]
  - OBSESSIVE THOUGHTS [None]
  - PANCYTOPENIA [None]
  - POLLAKIURIA [None]
  - SEDATION [None]
  - SUICIDAL IDEATION [None]
  - TOOTHACHE [None]
  - VOMITING [None]
  - WEIGHT DECREASED [None]
